FAERS Safety Report 20873477 (Version 1)
Quarter: 2022Q2

REPORT INFORMATION
  Report Type: Spontaneous
  Country: PS (occurrence: PS)
  Receive Date: 20220525
  Receipt Date: 20220525
  Transmission Date: 20220720
  Serious: Yes (Life-Threatening, Hospitalization, Other)
  Sender: FDA-Public Use
  Company Number: PS-LUPIN PHARMACEUTICALS INC.-2022-07477

PATIENT
  Age: 30 Year
  Sex: Female

DRUGS (6)
  1. LEVETIRACETAM [Suspect]
     Active Substance: LEVETIRACETAM
     Indication: Myoclonic epilepsy
     Dosage: 1500 MILLIGRAM (LOADING DOSE)
     Route: 042
  2. LEVETIRACETAM [Suspect]
     Active Substance: LEVETIRACETAM
     Dosage: 500 MILLIGRAM, BID
     Route: 042
  3. LEVETIRACETAM [Suspect]
     Active Substance: LEVETIRACETAM
     Dosage: 1000 MILLIGRAM, BID
     Route: 065
  4. MIDAZOLAM [Suspect]
     Active Substance: MIDAZOLAM
     Indication: Myoclonic epilepsy
     Dosage: 10 MILLIGRAM (LOADING DOSE)
     Route: 042
  5. MIDAZOLAM [Suspect]
     Active Substance: MIDAZOLAM
     Dosage: 10 MILLIGRAM PER HOUR
     Route: 042
  6. ACTIVATED CHARCOAL [Concomitant]
     Active Substance: ACTIVATED CHARCOAL
     Indication: Gastric lavage
     Dosage: 50 GRAM (FOR 24 HOURS VIA NASOGASTRIC TUBE)
     Route: 065

REACTIONS (1)
  - Drug ineffective [Unknown]
